FAERS Safety Report 24993435 (Version 1)
Quarter: 2025Q1

REPORT INFORMATION
  Report Type: Report from Study
  Country: US (occurrence: US)
  Receive Date: 20250221
  Receipt Date: 20250221
  Transmission Date: 20250409
  Serious: Yes (Other)
  Sender: ABBVIE
  Company Number: US-ABBVIE-6137354

PATIENT
  Age: 67 Year
  Sex: Female

DRUGS (1)
  1. LINACLOTIDE [Suspect]
     Active Substance: LINACLOTIDE
     Indication: Constipation
     Route: 048
     Dates: start: 202408

REACTIONS (4)
  - Chemotherapy [Unknown]
  - Constipation [Recovered/Resolved]
  - Drug ineffective [Unknown]
  - Product physical issue [Recovered/Resolved]

NARRATIVE: CASE EVENT DATE: 20250210
